FAERS Safety Report 18927121 (Version 2)
Quarter: 2021Q1

REPORT INFORMATION
  Report Type: Spontaneous
  Country: US (occurrence: US)
  Receive Date: 20210223
  Receipt Date: 20210302
  Transmission Date: 20210420
  Serious: Yes (Other)
  Sender: FDA-Public Use
  Company Number: US-GLAXOSMITHKLINE-US2021GSK039663

PATIENT
  Sex: Female

DRUGS (12)
  1. RANITIDINE. [Suspect]
     Active Substance: RANITIDINE
     Dosage: 5MG|PRESCRIPTION
     Route: 065
     Dates: start: 200409, end: 202011
  2. ZANTAC [Suspect]
     Active Substance: RANITIDINE HYDROCHLORIDE
     Indication: DYSPEPSIA
     Dosage: UNKNOWN AT THIS TIME BOTH
     Route: 065
     Dates: start: 200409, end: 202011
  3. ZANTAC [Suspect]
     Active Substance: RANITIDINE HYDROCHLORIDE
     Dosage: |BOTH
     Route: 065
     Dates: start: 200409, end: 202011
  4. RANITIDINE. [Suspect]
     Active Substance: RANITIDINE
     Indication: DYSPEPSIA
     Dosage: UNKNOWN AT THIS TIME PRESCRIPTION
     Route: 065
     Dates: start: 200409, end: 202011
  5. RANITIDINE. [Suspect]
     Active Substance: RANITIDINE
     Dosage: 5MG|PRESCRIPTION
     Route: 065
     Dates: start: 200409, end: 202011
  6. ZANTAC [Suspect]
     Active Substance: RANITIDINE HYDROCHLORIDE
     Indication: DYSPEPSIA
     Dosage: UNKNOWN AT THIS TIME BOTH
     Route: 065
     Dates: start: 200409, end: 202011
  7. ZANTAC [Suspect]
     Active Substance: RANITIDINE HYDROCHLORIDE
     Dosage: |BOTH
     Route: 065
     Dates: start: 200409, end: 202011
  8. RANITIDINE CAPSULE [Suspect]
     Active Substance: RANITIDINE
     Indication: DYSPEPSIA
     Dosage: UNKNOWN AT THIS TIME BOTH
     Route: 065
     Dates: start: 200409, end: 202011
  9. RANITIDINE CAPSULE [Suspect]
     Active Substance: RANITIDINE
     Dosage: |BOTH
     Route: 065
     Dates: start: 200409, end: 202011
  10. RANITIDINE. [Suspect]
     Active Substance: RANITIDINE
     Indication: DYSPEPSIA
     Dosage: UNKNOWN AT THIS TIME PRESCRIPTION
     Route: 065
     Dates: start: 200409, end: 202011
  11. ZANTAC [Suspect]
     Active Substance: RANITIDINE HYDROCHLORIDE
     Indication: DYSPEPSIA
     Dosage: UNKNOWN AT THIS TIME BOTH
     Route: 065
     Dates: start: 200409, end: 202011
  12. ZANTAC [Suspect]
     Active Substance: RANITIDINE HYDROCHLORIDE
     Dosage: |BOTH
     Route: 065
     Dates: start: 200409, end: 202011

REACTIONS (2)
  - Ovarian cancer [Unknown]
  - Throat cancer [Unknown]
